FAERS Safety Report 4428819-1 (Version None)
Quarter: 2004Q3

REPORT INFORMATION
  Report Type: 
  Country: None (occurrence: None)
  Receive Date: 20040818
  Receipt Date: 20040526
  Transmission Date: 20050211
  Serious: Yes (Other)
  Sender: FDA-Public Use
  Company Number: NL-GLAXOSMITHKLINE-B0334138A

PATIENT
  Age: 69 Year
  Sex: Male

DRUGS (9)
  1. DUTASTERIDE [Suspect]
     Route: 048
     Dates: start: 20040319, end: 20040510
  2. DIOVAN [Concomitant]
  3. ZOCOR [Concomitant]
     Route: 048
  4. ASPIRIN [Concomitant]
     Route: 048
  5. SERETIDE [Concomitant]
  6. NIFEDIPINE [Concomitant]
     Route: 048
  7. RHINOCORT [Concomitant]
  8. FLECAINIDE ACETATE [Concomitant]
     Dosage: 100MG PER DAY
  9. EMCOR [Concomitant]
     Dosage: 5MG PER DAY

REACTIONS (2)
  - ATRIAL FIBRILLATION [None]
  - PALPITATIONS [None]
